FAERS Safety Report 8009882-8 (Version None)
Quarter: 2011Q4

REPORT INFORMATION
  Report Type: 
  Country: None (occurrence: None)
  Receive Date: 20111221
  Receipt Date: 20111205
  Transmission Date: 20120403
  Serious: Yes (Death)
  Sender: FDA-Public Use
  Company Number: 2011AP003055

PATIENT
  Age: 66 Year
  Sex: Male

DRUGS (2)
  1. DILTIAZEM [Suspect]
     Indication: PRODUCT USED FOR UNKNOWN INDICATION
  2. COLCHICINE [Suspect]
     Indication: GOUT

REACTIONS (3)
  - POTENTIATING DRUG INTERACTION [None]
  - VOMITING [None]
  - TOXICITY TO VARIOUS AGENTS [None]
